FAERS Safety Report 9223903 (Version 1)
Quarter: 2013Q2

REPORT INFORMATION
  Report Type: Spontaneous
  Country: US (occurrence: US)
  Receive Date: 20130411
  Receipt Date: 20130411
  Transmission Date: 20140414
  Serious: No
  Sender: FDA-Public Use
  Company Number: US-BIOGENIDEC-2012BI030109

PATIENT
  Age: 45 Year
  Sex: Female

DRUGS (2)
  1. AVONEX [Suspect]
     Indication: MULTIPLE SCLEROSIS
     Route: 030
     Dates: start: 20120803, end: 20130113
  2. AVONEX [Suspect]
     Indication: MULTIPLE SCLEROSIS
     Route: 030
     Dates: start: 20130329

REACTIONS (10)
  - Feeling cold [Recovered/Resolved]
  - Hypoaesthesia [Not Recovered/Not Resolved]
  - Hypotonia [Not Recovered/Not Resolved]
  - Burning sensation [Not Recovered/Not Resolved]
  - Gait disturbance [Not Recovered/Not Resolved]
  - General symptom [Not Recovered/Not Resolved]
  - Influenza like illness [Recovered/Resolved]
  - Pain [Recovered/Resolved]
  - Bone pain [Recovered/Resolved]
  - Musculoskeletal stiffness [Recovered/Resolved]
